FAERS Safety Report 7828189-2 (Version None)
Quarter: 2011Q4

REPORT INFORMATION
  Report Type: 
  Country: None (occurrence: None)
  Receive Date: 20111020
  Receipt Date: 20111006
  Transmission Date: 20120403
  Serious: Yes (Hospitalization, Other)
  Sender: FDA-Public Use
  Company Number: US-ELI_LILLY_AND_COMPANY-US201108009460

PATIENT
  Sex: Female
  Weight: 71.2 kg

DRUGS (12)
  1. ALBUTEROL [Concomitant]
  2. PRISTIQ [Concomitant]
  3. ALLEGRA [Concomitant]
  4. SYMBICORT [Concomitant]
  5. OXYGEN [Concomitant]
  6. FORTEO [Suspect]
     Indication: OSTEOPOROSIS
     Dosage: 20 UG, QD
     Dates: start: 20110201
  7. VENTOLIN                                /SCH/ [Concomitant]
  8. VERAMYST [Concomitant]
  9. SPIRIVA [Concomitant]
  10. GABAPENTIN [Concomitant]
  11. MIRAPEX [Concomitant]
  12. LIVALO [Concomitant]

REACTIONS (8)
  - PNEUMONIA [None]
  - FALL [None]
  - WRIST FRACTURE [None]
  - WEIGHT DECREASED [None]
  - COORDINATION ABNORMAL [None]
  - DECREASED APPETITE [None]
  - BALANCE DISORDER [None]
  - ANKLE FRACTURE [None]
